FAERS Safety Report 5264791-2 (Version None)
Quarter: 2007Q1

REPORT INFORMATION
  Report Type: 
  Country: None (occurrence: None)
  Receive Date: 20061124
  Receipt Date: 20040812
  Transmission Date: 20070707
  Serious: No
  Sender: FDA-Public Use
  Company Number: 2004UW14387

PATIENT
  Sex: Male

DRUGS (3)
  1. TENORMIN [Suspect]
     Indication: ANGINA PECTORIS
     Dosage: 50 MG PO
     Route: 048
  2. ASPIRIN [Suspect]
     Indication: ANGINA PECTORIS
  3. LESCOL [Suspect]

REACTIONS (1)
  - MYOCARDIAL INFARCTION [None]
